FAERS Safety Report 7489615-4 (Version None)
Quarter: 2011Q2

REPORT INFORMATION
  Report Type: 
  Country: None (occurrence: None)
  Receive Date: 20110519
  Receipt Date: 20110511
  Transmission Date: 20111010
  Serious: Yes (Hospitalization)
  Sender: FDA-Public Use
  Company Number: US-BIOGENIDEC-2010BI010121

PATIENT
  Age: 62 Year
  Sex: Female

DRUGS (2)
  1. TYSABRI [Suspect]
     Indication: MULTIPLE SCLEROSIS
     Route: 042
     Dates: start: 20061120, end: 20070607
  2. TYSABRI [Suspect]
     Route: 042
     Dates: start: 20080313, end: 20100127

REACTIONS (2)
  - HERPES ZOSTER [None]
  - POST HERPETIC NEURALGIA [None]
